FAERS Safety Report 17036681 (Version 2)
Quarter: 2020Q1

REPORT INFORMATION
  Report Type: Report from Study
  Country: NL (occurrence: NL)
  Receive Date: 20191115
  Receipt Date: 20200102
  Transmission Date: 20200409
  Serious: Yes (Hospitalization)
  Sender: FDA-Public Use
  Company Number: NL-EMD SERONO-9127897

PATIENT
  Age: 50 Year
  Sex: Female

DRUGS (2)
  1. GABAPENTINE [Concomitant]
     Active Substance: GABAPENTIN
     Indication: PARAESTHESIA
     Dosage: TWO TIMES THE DIAGNOSTIC DOSE
  2. MAVENCLAD [Suspect]
     Active Substance: CLADRIBINE
     Indication: RELAPSING MULTIPLE SCLEROSIS
     Dosage: YEAR ONE THERAPY
     Route: 048

REACTIONS (1)
  - Lower limb fracture [Not Recovered/Not Resolved]
